FAERS Safety Report 14390636 (Version 3)
Quarter: 2018Q3

REPORT INFORMATION
  Report Type: Report from Study
  Country: None (occurrence: US)
  Receive Date: 20180116
  Receipt Date: 20180703
  Transmission Date: 20181010
  Serious: Yes (Other)
  Sender: FDA-Public Use
  Company Number: US-ABBVIE-17K-163-2180569-00

PATIENT
  Sex: Female

DRUGS (1)
  1. HUMIRA [Suspect]
     Active Substance: ADALIMUMAB
     Indication: CROHN^S DISEASE
     Route: 058

REACTIONS (17)
  - Haemorrhagic anaemia [Not Recovered/Not Resolved]
  - Large intestine polyp [Unknown]
  - Depression [Unknown]
  - Inflammatory bowel disease [Unknown]
  - Pain [Unknown]
  - Stomatitis [Unknown]
  - Swollen tongue [Unknown]
  - Rheumatoid arthritis [Unknown]
  - Oesophagitis [Unknown]
  - Diarrhoea [Unknown]
  - Internal haemorrhage [Unknown]
  - Precancerous cells present [Unknown]
  - Osteoarthritis [Unknown]
  - Fatigue [Unknown]
  - Osteoporosis [Unknown]
  - Rectal haemorrhage [Unknown]
  - Neck pain [Unknown]
